FAERS Safety Report 4600671-0 (Version None)
Quarter: 2005Q1

REPORT INFORMATION
  Report Type: 
  Country: None (occurrence: None)
  Receive Date: 20050304
  Receipt Date: 20050223
  Transmission Date: 20050727
  Serious: Yes (Hospitalization)
  Sender: FDA-Public Use
  Company Number: MK200502-0212-1

PATIENT
  Age: 4 Year
  Sex: Female
  Weight: 6.804 kg

DRUGS (1)
  1. METHADOSE [Suspect]
     Indication: ACCIDENTAL POISONING
     Dosage: 10-15 MG, ONE TIME

REACTIONS (7)
  - ACCIDENTAL POISONING [None]
  - BRADYPNOEA [None]
  - CYANOSIS [None]
  - HEART RATE INCREASED [None]
  - LOSS OF CONSCIOUSNESS [None]
  - MYDRIASIS [None]
  - NARCOTIC INTOXICATION [None]
